FAERS Safety Report 7255503-1 (Version None)
Quarter: 2011Q1

REPORT INFORMATION
  Report Type: 
  Country: None (occurrence: None)
  Receive Date: 20110129
  Receipt Date: 20100306
  Transmission Date: 20110831
  Serious: No
  Sender: FDA-Public Use
  Company Number: US-ABBOTT-10P-163-0630936-00

PATIENT
  Sex: Female
  Weight: 83.99 kg

DRUGS (2)
  1. HUMIRA [Suspect]
     Indication: CROHN'S DISEASE
     Dates: start: 20081102
  2. HUMIRA [Suspect]

REACTIONS (3)
  - HAEMATOCHEZIA [None]
  - CROHN'S DISEASE [None]
  - FREQUENT BOWEL MOVEMENTS [None]
